FAERS Safety Report 6331262-1 (Version None)
Quarter: 2009Q3

REPORT INFORMATION
  Report Type: 
  Country: None (occurrence: None)
  Receive Date: 20090827
  Receipt Date: 20070525
  Transmission Date: 20100115
  Serious: Yes (Hospitalization, Other)
  Sender: FDA-Public Use
  Company Number: GB-AVENTIS-200919278GDDC

PATIENT
  Age: 74 Year
  Sex: Female

DRUGS (2)
  1. GLIBENCLAMIDE [Suspect]
     Indication: DIABETES MELLITUS
  2. METFORMIN HCL [Suspect]
     Indication: DIABETES MELLITUS

REACTIONS (5)
  - DEPRESSED LEVEL OF CONSCIOUSNESS [None]
  - DRUG TOXICITY [None]
  - PANCREATITIS ACUTE [None]
  - RECTAL ADENOMA [None]
  - RENAL FAILURE ACUTE [None]
